FAERS Safety Report 5291094-2 (Version None)
Quarter: 2007Q2

REPORT INFORMATION
  Report Type: 
  Country: None (occurrence: None)
  Receive Date: 20070409
  Receipt Date: 20070404
  Transmission Date: 20071010
  Serious: Yes (Hospitalization, Other)
  Sender: FDA-Public Use
  Company Number: GB-BRISTOL-MYERS SQUIBB COMPANY-13552179

PATIENT
  Age: 49 Year
  Sex: Male
  Weight: 73 kg

DRUGS (4)
  1. REYATAZ [Suspect]
     Indication: HIV INFECTION
     Route: 048
     Dates: start: 20031120, end: 20061024
  2. RITONAVIR [Suspect]
     Indication: HIV INFECTION
     Dates: start: 20031120, end: 20061024
  3. TRUVADA [Concomitant]
     Indication: HIV INFECTION
     Dosage: EMTRICITABINE 200 MG + TENOFOVIR DISOPROXIL 245 MG
     Route: 048
     Dates: start: 20050626
  4. PRAVASTATIN SODIUM [Concomitant]
     Indication: HYPERLIPIDAEMIA
     Route: 048

REACTIONS (2)
  - NEPHROLITHIASIS [None]
  - RENAL COLIC [None]
